FAERS Safety Report 7126634-1 (Version None)
Quarter: 2010Q4

REPORT INFORMATION
  Report Type: 
  Country: None (occurrence: None)
  Receive Date: 20101129
  Receipt Date: 20101122
  Transmission Date: 20110411
  Serious: Yes (Death, Hospitalization, Other)
  Sender: FDA-Public Use
  Company Number: DK-ROCHE-743946

PATIENT

DRUGS (1)
  1. DIAZEPAM [Suspect]
     Indication: DELIRIUM TREMENS
     Route: 041

REACTIONS (7)
  - ARRHYTHMIA [None]
  - DIABETES MELLITUS INADEQUATE CONTROL [None]
  - DRUG INEFFECTIVE [None]
  - HYPOTENSION [None]
  - PNEUMONIA [None]
  - RESPIRATORY DEPRESSION [None]
  - RESPIRATORY DISORDER [None]
